FAERS Safety Report 13289011 (Version 1)
Quarter: 2017Q1

REPORT INFORMATION
  Report Type: Spontaneous
  Country: US (occurrence: US)
  Receive Date: 20170302
  Receipt Date: 20170302
  Transmission Date: 20170428
  Serious: Yes (Other)
  Sender: FDA-Public Use
  Company Number: US-JNJFOC-20170219354

PATIENT
  Age: 11 Year
  Sex: Male
  Weight: 36.29 kg

DRUGS (3)
  1. FLOVENT [Concomitant]
     Active Substance: FLUTICASONE PROPIONATE
     Indication: PRODUCT USED FOR UNKNOWN INDICATION
     Route: 065
  2. SINGULAIR [Concomitant]
     Active Substance: MONTELUKAST SODIUM
     Indication: PRODUCT USED FOR UNKNOWN INDICATION
     Route: 065
  3. CHILDRENS SUDAFED PE NASAL DECONGESTANT [Suspect]
     Active Substance: PHENYLEPHRINE HYDROCHLORIDE
     Indication: SINUS CONGESTION
     Dosage: DOSE: 2 TEASPOONS; EVERY 4-5 HOURS
     Route: 048
     Dates: end: 201702

REACTIONS (3)
  - Suicidal ideation [Recovered/Resolved]
  - Abnormal dreams [Recovered/Resolved]
  - Hallucination [Recovered/Resolved]

NARRATIVE: CASE EVENT DATE: 20170213
